FAERS Safety Report 6181872-X (Version None)
Quarter: 2009Q2

REPORT INFORMATION
  Report Type: 
  Country: None (occurrence: None)
  Receive Date: 20090504
  Receipt Date: 20090421
  Transmission Date: 20091009
  Serious: Yes (Hospitalization)
  Sender: FDA-Public Use
  Company Number: A-JP2009-24565

PATIENT
  Age: 30 Year
  Sex: Female

DRUGS (4)
  1. TRACLEER [Suspect]
     Indication: PULMONARY ARTERIAL HYPERTENSION
     Dosage: 31.25 MG, BID, ORAL
     Route: 048
     Dates: start: 20080101, end: 20090327
  2. BERAPROST SODIUM (BERAPROST SODIUM) [Concomitant]
  3. FUROSEMIDE [Concomitant]
  4. DIGOXIN [Concomitant]

REACTIONS (4)
  - FLUSHING [None]
  - HYPOAESTHESIA [None]
  - PAIN IN EXTREMITY [None]
  - SPINAL CORD COMPRESSION [None]
